FAERS Safety Report 7039902-9 (Version None)
Quarter: 2010Q4

REPORT INFORMATION
  Report Type: 
  Country: None (occurrence: None)
  Receive Date: 20101012
  Receipt Date: 20100930
  Transmission Date: 20110411
  Serious: Yes (Hospitalization, Other)
  Sender: FDA-Public Use
  Company Number: JP-PFIZER INC-2010126011

PATIENT
  Age: 76 Year
  Sex: Male

DRUGS (7)
  1. SEIBULE [Suspect]
     Indication: TYPE 2 DIABETES MELLITUS
     Dosage: 50 MG, 3X/DAY
     Route: 048
     Dates: start: 20100113, end: 20100518
  2. NOVORAPID [Concomitant]
     Indication: TYPE 2 DIABETES MELLITUS
     Dosage: 22 IU, UNK
     Route: 058
     Dates: end: 20100513
  3. OMEPRAL [Concomitant]
     Dosage: 20 MG, UNK
     Route: 048
  4. LIVALO [Concomitant]
     Dosage: 2 MG, UNK
     Route: 048
  5. METHYCOBAL [Concomitant]
     Dosage: 1.5 MG, UNK
     Route: 048
  6. SELBEX [Concomitant]
     Dosage: 150 MG, UNK
     Route: 048
  7. PURSENNID [Concomitant]
     Dosage: 12 MG, UNK
     Route: 048

REACTIONS (2)
  - DRUG HYPERSENSITIVITY [None]
  - HYPERGLYCAEMIA [None]
